FAERS Safety Report 23139974 (Version 1)
Quarter: 2023Q4

REPORT INFORMATION
  Report Type: Spontaneous
  Country: FR (occurrence: FR)
  Receive Date: 20231102
  Receipt Date: 20231102
  Transmission Date: 20240110
  Serious: Yes (Hospitalization, Other)
  Sender: FDA-Public Use
  Company Number: None

PATIENT
  Age: 36 Year
  Sex: Female
  Weight: 56 kg

DRUGS (9)
  1. KEYTRUDA [Suspect]
     Active Substance: PEMBROLIZUMAB
     Indication: Invasive ductal breast carcinoma
     Dosage: DOSAGE NOT REPORTED
     Dates: start: 20230920, end: 20230920
  2. FOLIC ACID [Concomitant]
     Active Substance: FOLIC ACID
  3. PACLITAXEL [Concomitant]
     Active Substance: PACLITAXEL
  4. BACTRIM [Concomitant]
     Active Substance: SULFAMETHOXAZOLE\TRIMETHOPRIM
  5. LANSOPRAZOLE [Concomitant]
     Active Substance: LANSOPRAZOLE
     Dosage: FORMULATION: GASTRO-RESISTANT MICROGRANULES IN CAPSULE
  6. VALACYCLOVIR HYDROCHLORIDE [Concomitant]
     Active Substance: VALACYCLOVIR HYDROCHLORIDE
  7. CARBOPLATIN [Concomitant]
     Active Substance: CARBOPLATIN
  8. PREDNISONE [Concomitant]
     Active Substance: PREDNISONE
  9. IMOVANE [Concomitant]
     Active Substance: ZOPICLONE

REACTIONS (1)
  - Thrombotic microangiopathy [Recovered/Resolved]

NARRATIVE: CASE EVENT DATE: 20230920
